FAERS Safety Report 6060901-8 (Version None)
Quarter: 2009Q1

REPORT INFORMATION
  Report Type: 
  Country: None (occurrence: None)
  Receive Date: 20090130
  Receipt Date: 20090130
  Transmission Date: 20090719
  Serious: Yes (Hospitalization)
  Sender: FDA-Public Use
  Company Number: None

PATIENT
  Sex: Male
  Weight: 43.1 kg

DRUGS (4)
  1. MERCAPTOPURINE [Suspect]
     Dosage: 2050 MG
     Dates: start: 20081121, end: 20081218
  2. METHOTREXATE [Suspect]
     Dosage: 15 MG
     Dates: end: 20081121
  3. PREDNISONE [Suspect]
     Dosage: 495 MG
     Dates: end: 20081226
  4. VINCRISTINE SULFATE [Suspect]
     Dosage: 4 MG
     Dates: end: 20081223

REACTIONS (2)
  - DIALYSIS [None]
  - GASTROINTESTINAL HAEMORRHAGE [None]
